FAERS Safety Report 21142409 (Version 10)
Quarter: 2022Q4

REPORT INFORMATION
  Report Type: Report from Study
  Country: US (occurrence: None)
  Receive Date: 20220728
  Receipt Date: 20221228
  Transmission Date: 20230113
  Serious: Yes (Hospitalization)
  Sender: FDA-Public Use
  Company Number: US-Eisai Medical Research-EC-2022-120004

PATIENT
  Age: 65 Year
  Sex: Male
  Weight: 76.9 kg

DRUGS (16)
  1. LENVATINIB [Suspect]
     Active Substance: LENVATINIB
     Indication: Renal cell carcinoma
     Route: 048
     Dates: start: 20210924, end: 20220519
  2. LENVATINIB [Suspect]
     Active Substance: LENVATINIB
     Route: 048
     Dates: start: 20220522
  3. FAVEZELIMAB [Suspect]
     Active Substance: FAVEZELIMAB
     Indication: Renal cell carcinoma
     Dosage: MK-4280 800MG (+) MK-3475 200 MG
     Route: 042
     Dates: start: 20210924, end: 20220511
  4. PEMBROLIZUMAB [Suspect]
     Active Substance: PEMBROLIZUMAB
     Dosage: MK-4280 800MG (+) MK-3475 200 MG
     Route: 042
     Dates: start: 20220601
  5. ALEVE COLD + SINUS [Concomitant]
     Active Substance: NAPROXEN SODIUM\PSEUDOEPHEDRINE HYDROCHLORIDE
     Dates: start: 20170101
  6. OMEGA-3-ACID ETHYL ESTERS [Concomitant]
     Active Substance: OMEGA-3-ACID ETHYL ESTERS
     Dates: start: 20210701
  7. TYLENOL [Concomitant]
     Active Substance: ACETAMINOPHEN
     Dates: start: 20170101
  8. ASCORBIC ACID [Concomitant]
     Active Substance: ASCORBIC ACID
     Dates: start: 20000101
  9. CHOLECALCIFEROL [Concomitant]
     Active Substance: CHOLECALCIFEROL
     Dates: start: 20170101
  10. CYANOCOBALAMIN [Concomitant]
     Active Substance: CYANOCOBALAMIN
     Dates: start: 20170101
  11. UBIDECARENONE [Concomitant]
     Active Substance: UBIDECARENONE
     Dates: start: 20201001
  12. ZINC [Concomitant]
     Active Substance: ZINC
     Dates: start: 20210101
  13. VALSARTAN [Concomitant]
     Active Substance: VALSARTAN
     Dates: start: 20210930, end: 20220630
  14. ROSUVASTATIN [Concomitant]
     Active Substance: ROSUVASTATIN
     Dates: start: 20211001
  15. NORVASC [Concomitant]
     Active Substance: AMLODIPINE BESYLATE
     Dates: start: 20220516
  16. NAPROXEN SODIUM AND PSEUDOEPHEDRINE HYDROCHLORIDE [Concomitant]
     Dates: start: 20210927

REACTIONS (1)
  - Colonic fistula [Recovered/Resolved]

NARRATIVE: CASE EVENT DATE: 20220519
